FAERS Safety Report 4961720-3 (Version None)
Quarter: 2006Q2

REPORT INFORMATION
  Report Type: 
  Country: None (occurrence: None)
  Receive Date: 20060404
  Receipt Date: 20060318
  Transmission Date: 20061013
  Serious: Yes (Death, Hospitalization)
  Sender: FDA-Public Use
  Company Number: PHHO2006BR04665

PATIENT
  Age: 57 Year
  Sex: Female
  Weight: 90 kg

DRUGS (3)
  1. CHEMOTHERAPEUTICS,OTHER [Suspect]
  2. RADIO-THERAPY [Suspect]
  3. ELIDEL [Suspect]
     Indication: ORAL LICHEN PLANUS
     Dosage: TWICE DAILY
     Route: 061

REACTIONS (5)
  - ASTHENIA [None]
  - FOOD INTOLERANCE [None]
  - LIP AND/OR ORAL CAVITY CANCER [None]
  - ORAL LICHEN PLANUS [None]
  - PNEUMONIA [None]
